FAERS Safety Report 23437962 (Version 2)
Quarter: 2024Q2

REPORT INFORMATION
  Report Type: Spontaneous
  Country: US (occurrence: US)
  Receive Date: 20240124
  Receipt Date: 20240423
  Transmission Date: 20240716
  Serious: No
  Sender: FDA-Public Use
  Company Number: US-PFIZER INC-202400020362

PATIENT
  Age: 70 Year
  Sex: Female

DRUGS (1)
  1. SOMAVERT [Suspect]
     Active Substance: PEGVISOMANT
     Dosage: 20 MG
     Dates: start: 202006

REACTIONS (2)
  - Product dose omission issue [Unknown]
  - Peripheral swelling [Recovered/Resolved]
